FAERS Safety Report 7058351-0 (Version None)
Quarter: 2010Q4

REPORT INFORMATION
  Report Type: 
  Country: None (occurrence: None)
  Receive Date: 20101022
  Receipt Date: 20101015
  Transmission Date: 20110411
  Serious: No
  Sender: FDA-Public Use
  Company Number: US-PFIZER INC-2010131778

PATIENT
  Sex: Female

DRUGS (2)
  1. SYNAREL [Suspect]
     Dosage: 2 MG, EVERY 12 HOURS
  2. SYNAREL [Suspect]
     Dosage: 2 MG, 4 SPRAYS PER DAY

REACTIONS (2)
  - DRUG INEFFECTIVE [None]
  - HOT FLUSH [None]
